FAERS Safety Report 15371994 (Version 1)
Quarter: 2018Q3

REPORT INFORMATION
  Report Type: Spontaneous
  Country: CH (occurrence: CH)
  Receive Date: 20180911
  Receipt Date: 20180911
  Transmission Date: 20181010
  Serious: Yes (Hospitalization)
  Sender: FDA-Public Use
  Company Number: CH-009507513-1809CHE001711

PATIENT
  Age: 74 Year
  Sex: Female

DRUGS (2)
  1. ATORVASTATIN [Concomitant]
     Active Substance: ATORVASTATIN
     Dosage: 10 MG, QD
     Route: 048
  2. KEYTRUDA [Suspect]
     Active Substance: PEMBROLIZUMAB
     Dosage: DRUG DOSE AND DOSAGE REGIMEN NOT KNOWN. THE THERAPY WAS NOT [DISCONTINUED] WHEN THE PATIENT WAS HOSP
     Route: 041
     Dates: start: 20180126

REACTIONS (3)
  - Skin lesion [Recovering/Resolving]
  - Oedema mucosal [Recovering/Resolving]
  - Lichen planus [Recovering/Resolving]

NARRATIVE: CASE EVENT DATE: 201807
